FAERS Safety Report 6932286-3 (Version None)
Quarter: 2010Q3

REPORT INFORMATION
  Report Type: 
  Country: None (occurrence: None)
  Receive Date: 20100813
  Receipt Date: 20100602
  Transmission Date: 20110219
  Serious: No
  Sender: FDA-Public Use
  Company Number: 1000013994

PATIENT
  Age: 54 Year
  Sex: Female
  Weight: 60.782 kg

DRUGS (7)
  1. SAVELLA [Suspect]
     Indication: FIBROMYALGIA
     Dosage: 12.5 MG 912.5 MG, 1 IN 1 D), ORAL; 25 MG (12.5 MG,2 IN 1 D), ORAL; 50 MG 925 MG,2 IN 1 D), ORAL
     Route: 048
     Dates: start: 20100304, end: 20100304
  2. SAVELLA [Suspect]
     Indication: FIBROMYALGIA
     Dosage: 12.5 MG 912.5 MG, 1 IN 1 D), ORAL; 25 MG (12.5 MG,2 IN 1 D), ORAL; 50 MG 925 MG,2 IN 1 D), ORAL
     Route: 048
     Dates: start: 20100305, end: 20100306
  3. SAVELLA [Suspect]
     Indication: FIBROMYALGIA
     Dosage: 12.5 MG 912.5 MG, 1 IN 1 D), ORAL; 25 MG (12.5 MG,2 IN 1 D), ORAL; 50 MG 925 MG,2 IN 1 D), ORAL
     Route: 048
     Dates: start: 20100307, end: 20100310
  4. SAVELLA [Suspect]
     Indication: FIBROMYALGIA
     Dosage: 100 MG (50 MG,2 IN 1 D), ORAL
     Route: 048
     Dates: start: 20100311, end: 20100503
  5. LIPITOR [Concomitant]
  6. SYNTHROID [Concomitant]
  7. VICODIN [Concomitant]

REACTIONS (3)
  - CONTUSION [None]
  - HAEMORRHAGE URINARY TRACT [None]
  - HEADACHE [None]
